FAERS Safety Report 14487234 (Version 1)
Quarter: 2018Q1

REPORT INFORMATION
  Report Type: Report from Study
  Country: US (occurrence: US)
  Receive Date: 20180205
  Receipt Date: 20180205
  Transmission Date: 20180509
  Serious: No
  Sender: FDA-Public Use
  Company Number: US-AMGEN-USASL2017148387

PATIENT
  Age: 69 Year
  Sex: Female

DRUGS (2)
  1. NEUPOGEN [Suspect]
     Active Substance: FILGRASTIM
     Indication: PRODUCT USED FOR UNKNOWN INDICATION
     Dosage: UNK
     Route: 065
     Dates: end: 20170926
  2. NEULASTA [Suspect]
     Active Substance: PEGFILGRASTIM
     Indication: PRODUCT USED FOR UNKNOWN INDICATION
     Dosage: UNK, AFTER CHEMO
     Route: 065
     Dates: start: 20170927

REACTIONS (9)
  - Dyspnoea [Not Recovered/Not Resolved]
  - Blood glucose increased [Unknown]
  - Overweight [Not Recovered/Not Resolved]
  - Neutrophil count increased [Unknown]
  - Red cell distribution width abnormal [Unknown]
  - Off label use [Unknown]
  - White blood cell count abnormal [Unknown]
  - Monocyte count increased [Unknown]
  - Blood alkaline phosphatase abnormal [Unknown]

NARRATIVE: CASE EVENT DATE: 201709
